FAERS Safety Report 17307931 (Version 1)
Quarter: 2020Q1

REPORT INFORMATION
  Report Type: Spontaneous
  Country: US (occurrence: US)
  Receive Date: 20200106
  Receipt Date: 20200106
  Transmission Date: 20200409
  Serious: No
  Sender: FDA-Public Use
  Company Number: None

PATIENT
  Age: 71 Year
  Sex: Male

DRUGS (1)
  1. BUPROPION (BUPROPION HCL 150MG 24 HR TAB, SA) [Suspect]
     Active Substance: BUPROPION
     Indication: DEPRESSION
     Route: 048
     Dates: start: 20160830, end: 20191224

REACTIONS (6)
  - Hemianopia homonymous [None]
  - Seizure [None]
  - Encephalomalacia [None]
  - Visual field defect [None]
  - Polyneuropathy [None]
  - Blindness [None]

NARRATIVE: CASE EVENT DATE: 20191222
